FAERS Safety Report 16216973 (Version 1)
Quarter: 2019Q2

REPORT INFORMATION
  Report Type: Spontaneous
  Country: US (occurrence: US)
  Receive Date: 20190419
  Receipt Date: 20190419
  Transmission Date: 20190711
  Serious: Yes (Life-Threatening, Hospitalization, Other)
  Sender: FDA-Public Use
  Company Number: US-APOTEX-2019AP012202

PATIENT
  Age: 12 Year
  Sex: Female

DRUGS (2)
  1. GLIPIZIDE. [Suspect]
     Active Substance: GLIPIZIDE
     Indication: PRODUCT USED FOR UNKNOWN INDICATION
     Dosage: UNK
     Route: 065
  2. MONTELUKAST SODIUM. [Suspect]
     Active Substance: MONTELUKAST SODIUM
     Indication: ASTHMA
     Dosage: 5 MG, QD
     Route: 048

REACTIONS (7)
  - Loss of consciousness [Recovered/Resolved]
  - Hypoglycaemic seizure [Recovered/Resolved]
  - Accidental exposure to product [Recovered/Resolved]
  - Hypoglycaemia [Recovered/Resolved]
  - Medication error [Recovered/Resolved]
  - Product dose omission [Unknown]
  - Mental status changes [Recovered/Resolved]
